FAERS Safety Report 12985011 (Version 1)
Quarter: 2016Q4

REPORT INFORMATION
  Report Type: Report from Study
  Country: VN (occurrence: VN)
  Receive Date: 20161129
  Receipt Date: 20161129
  Transmission Date: 20170207
  Serious: Yes (Hospitalization, Other)
  Sender: FDA-Public Use
  Company Number: VN-009507513-1611VNM008953

PATIENT
  Age: 54 Year
  Sex: Female

DRUGS (1)
  1. FOSAMAX [Suspect]
     Active Substance: ALENDRONATE SODIUM
     Indication: OSTEOPOROSIS
     Dosage: ONE TABLET, ONCE A WEEK
     Route: 048
     Dates: start: 20151001, end: 2016

REACTIONS (3)
  - Coma [Recovered/Resolved]
  - Haemolytic anaemia [Recovered/Resolved]
  - Sepsis [Recovered/Resolved]

NARRATIVE: CASE EVENT DATE: 2016
